FAERS Safety Report 8459871-4 (Version None)
Quarter: 2012Q2

REPORT INFORMATION
  Report Type: 
  Country: None (occurrence: None)
  Receive Date: 20120622
  Receipt Date: 20120617
  Transmission Date: 20120825
  Serious: Yes (Hospitalization, Other)
  Sender: FDA-Public Use
  Company Number: PHHY2012MX053036

PATIENT
  Sex: Female

DRUGS (2)
  1. ADALAT [Concomitant]
  2. ZOLEDRONOC ACID [Suspect]
     Indication: OSTEOPOROSIS
     Dosage: 5 MG/ 100 ML, ONCE A YEAR
     Route: 042

REACTIONS (3)
  - HERNIA OBSTRUCTIVE [None]
  - ABDOMINAL ADHESIONS [None]
  - ABDOMINAL HERNIA [None]
